FAERS Safety Report 19182398 (Version 1)
Quarter: 2021Q2

REPORT INFORMATION
  Report Type: Spontaneous
  Country: US (occurrence: US)
  Receive Date: 20210426
  Receipt Date: 20210426
  Transmission Date: 20210717
  Serious: No
  Sender: FDA-Public Use
  Company Number: US-PFIZER INC-2021405634

PATIENT
  Age: 62 Year
  Sex: Male
  Weight: 96.6 kg

DRUGS (5)
  1. IMODIUM A?D [Concomitant]
     Active Substance: LOPERAMIDE HYDROCHLORIDE
     Dosage: UNK, (1MG/7.5ML)
  2. MIRALAX [Concomitant]
     Active Substance: POLYETHYLENE GLYCOL 3350
     Dosage: UNK, (17G/DOSE POWDER)
  3. TRAMADOL HCL A [Concomitant]
     Dosage: 50 MG
  4. EMERGEN?C BONE HEALTH [Concomitant]
     Dosage: 100 MG
  5. INLYTA [Suspect]
     Active Substance: AXITINIB
     Indication: RECTAL CANCER
     Dosage: 5 MG, 2X/DAY
     Route: 048
     Dates: start: 201910

REACTIONS (1)
  - Gastrointestinal disorder [Unknown]
